FAERS Safety Report 24562290 (Version 3)
Quarter: 2024Q4

REPORT INFORMATION
  Report Type: Spontaneous
  Country: US (occurrence: US)
  Receive Date: 20241029
  Receipt Date: 20241118
  Transmission Date: 20250115
  Serious: Yes (Hospitalization)
  Sender: TRAVERE THERAPEUTICS
  Company Number: US-TRAVERE-2024TVT01085

PATIENT
  Age: 43 Year
  Sex: Male

DRUGS (3)
  1. FILSPARI [Suspect]
     Active Substance: SPARSENTAN
     Indication: IgA nephropathy
     Route: 048
     Dates: start: 202409, end: 20241023
  2. FILSPARI [Suspect]
     Active Substance: SPARSENTAN
     Dosage: RESTART
     Route: 048
  3. FILSPARI [Suspect]
     Active Substance: SPARSENTAN
     Dosage: 200MG TAKE 2 TABLETS DAILY
     Route: 048

REACTIONS (3)
  - Renal disorder [Unknown]
  - Gait disturbance [Unknown]
  - Blood creatinine increased [Unknown]
